FAERS Safety Report 15271558 (Version 1)
Quarter: 2018Q3

REPORT INFORMATION
  Report Type: Report from Study
  Country: DE (occurrence: DE)
  Receive Date: 20180813
  Receipt Date: 20180813
  Transmission Date: 20181010
  Serious: Yes (Other)
  Sender: FDA-Public Use
  Company Number: DE-MYLANLABS-2018M1060886

PATIENT
  Age: 50 Year
  Sex: Female

DRUGS (2)
  1. CLINDAMYCIN. [Suspect]
     Active Substance: CLINDAMYCIN
     Indication: TOOTH INFECTION
     Route: 065
  2. MILK THISTLE [Interacting]
     Active Substance: DIETARY SUPPLEMENT\HERBALS\MILK THISTLE
     Indication: NON-ALCOHOLIC FATTY LIVER
     Route: 065

REACTIONS (3)
  - Drug-induced liver injury [Recovering/Resolving]
  - Jaundice [Recovering/Resolving]
  - Drug interaction [Recovering/Resolving]
